FAERS Safety Report 5170679-8 (Version None)
Quarter: 2006Q4

REPORT INFORMATION
  Report Type: 
  Country: None (occurrence: None)
  Receive Date: 20060919
  Receipt Date: 20060627
  Transmission Date: 20070319
  Serious: No
  Sender: FDA-Public Use
  Company Number: 2006US001480

PATIENT
  Age: 51 Year
  Sex: Female

DRUGS (1)
  1. VESICARE [Suspect]
     Indication: NOCTURIA
     Dosage: 5 MG, ORAL
     Route: 048
     Dates: start: 20060621, end: 20060626

REACTIONS (1)
  - FATIGUE [None]
